FAERS Safety Report 6670791-8 (Version None)
Quarter: 2010Q2

REPORT INFORMATION
  Report Type: 
  Country: None (occurrence: None)
  Receive Date: 20100407
  Receipt Date: 20090805
  Transmission Date: 20101027
  Serious: Yes (Hospitalization)
  Sender: FDA-Public Use
  Company Number: JP-SANOFI-AVENTIS-200912204JP

PATIENT
  Age: 49 Year
  Sex: Female
  Weight: 56 kg

DRUGS (4)
  1. ENOXAPARIN SODIUM [Suspect]
     Route: 058
     Dates: start: 20081112, end: 20081112
  2. ENOXAPARIN SODIUM [Suspect]
     Route: 058
     Dates: start: 20081113, end: 20081119
  3. FERROMIA [Concomitant]
     Route: 048
     Dates: start: 20081117, end: 20081124
  4. CEFMETAZON [Concomitant]
     Indication: INFECTION PROPHYLAXIS
     Route: 041
     Dates: start: 20081111, end: 20081114

REACTIONS (1)
  - HEPATIC FUNCTION ABNORMAL [None]
